FAERS Safety Report 19677938 (Version 1)
Quarter: 2021Q3

REPORT INFORMATION
  Report Type: Report from Study
  Country: US (occurrence: US)
  Receive Date: 20210810
  Receipt Date: 20210810
  Transmission Date: 20211014
  Serious: Yes (Hospitalization)
  Sender: FDA-Public Use
  Company Number: US-AMGEN-USASL2021121557

PATIENT
  Age: 86 Year
  Sex: Male

DRUGS (1)
  1. OTEZLA [Suspect]
     Active Substance: APREMILAST
     Indication: PSORIASIS
     Dosage: 30 MILLIGRAM, BID
     Route: 065

REACTIONS (3)
  - Asthenia [Unknown]
  - Joint effusion [Unknown]
  - Psoriasis [Unknown]

NARRATIVE: CASE EVENT DATE: 202106
